APPROVED DRUG PRODUCT: SKELAXIN
Active Ingredient: METAXALONE
Strength: 800MG **Federal Register determination that product was not discontinued or withdrawn for safety or effectiveness reasons**
Dosage Form/Route: TABLET;ORAL
Application: N013217 | Product #003
Applicant: KING PHARMACEUTICALS RESEARCH AND DEVELOPMENT LLC A SUB OF PFIZER INC
Approved: Aug 30, 2002 | RLD: Yes | RS: No | Type: DISCN

PATENTS:
Patent 7122566 | Expires: Feb 6, 2026